FAERS Safety Report 15698526 (Version 1)
Quarter: 2018Q4

REPORT INFORMATION
  Report Type: Spontaneous
  Country: US (occurrence: US)
  Receive Date: 20181126
  Receipt Date: 20181126
  Transmission Date: 20190205
  Serious: Yes (Hospitalization)
  Sender: FDA-Public Use
  Company Number: None

PATIENT
  Age: 28 Year
  Sex: Male
  Weight: 117.8 kg

DRUGS (5)
  1. NEULASTA [Suspect]
     Active Substance: PEGFILGRASTIM
     Dates: end: 20181101
  2. CARBOPLATIN. [Suspect]
     Active Substance: CARBOPLATIN
     Dates: end: 20181030
  3. ETOPOSIDE (VP-16) [Suspect]
     Active Substance: ETOPOSIDE
     Dates: end: 20181030
  4. IFOSFAMIDE. [Suspect]
     Active Substance: IFOSFAMIDE
     Dates: end: 20180921
  5. TAXOL [Suspect]
     Active Substance: PACLITAXEL

REACTIONS (10)
  - Pyrexia [None]
  - Eructation [None]
  - Dizziness [None]
  - Decreased appetite [None]
  - Bone marrow transplant [None]
  - Neutropenia [None]
  - Duodenitis [None]
  - White blood cell count decreased [None]
  - Pain [None]
  - Abdominal lymphadenopathy [None]

NARRATIVE: CASE EVENT DATE: 20181108
